FAERS Safety Report 17949993 (Version 1)
Quarter: 2020Q2

REPORT INFORMATION
  Report Type: Spontaneous
  Country: ID (occurrence: ID)
  Receive Date: 20200626
  Receipt Date: 20200626
  Transmission Date: 20200714
  Serious: Yes (Other)
  Sender: FDA-Public Use
  Company Number: ID-ASTRAZENECA-2020SE81033

PATIENT
  Age: 83 Year
  Sex: Female

DRUGS (3)
  1. GEFITINIB. [Suspect]
     Active Substance: GEFITINIB
     Indication: PLEURAL EFFUSION
     Dosage: 250.0MG UNKNOWN
     Route: 048
     Dates: start: 201912
  2. GEFITINIB. [Suspect]
     Active Substance: GEFITINIB
     Indication: METASTASES TO BONE
     Dosage: 250.0MG UNKNOWN
     Route: 048
     Dates: start: 201912
  3. GEFITINIB. [Suspect]
     Active Substance: GEFITINIB
     Indication: LUNG ADENOCARCINOMA
     Dosage: 250.0MG UNKNOWN
     Route: 048
     Dates: start: 201912

REACTIONS (2)
  - SARS-CoV-2 test positive [Unknown]
  - Lung opacity [Unknown]
